FAERS Safety Report 10438319 (Version 2)
Quarter: 2014Q3

REPORT INFORMATION
  Report Type: Spontaneous
  Country: US (occurrence: US)
  Receive Date: 20140908
  Receipt Date: 20140908
  Transmission Date: 20150326
  Serious: No
  Sender: FDA-Public Use
  Company Number: US-BRISTOL-MYERS SQUIBB COMPANY-19146539

PATIENT
  Age: 53 Year
  Sex: Female

DRUGS (5)
  1. ANUSOL [Concomitant]
  2. TRAZODONE HYDROCHLORIDE. [Suspect]
     Active Substance: TRAZODONE HYDROCHLORIDE
     Indication: INSOMNIA
     Dates: start: 20130624
  3. KLONOPIN [Suspect]
     Active Substance: CLONAZEPAM
     Indication: ANXIETY
     Dates: start: 20130609
  4. ABILIFY [Suspect]
     Active Substance: ARIPIPRAZOLE
     Indication: DEPRESSION
     Dosage: 1/2-1TAB DAILY
     Route: 048
     Dates: start: 20130726, end: 201308
  5. TREXIMET [Concomitant]
     Active Substance: NAPROXEN SODIUM\SUMATRIPTAN SUCCINATE

REACTIONS (6)
  - Lacrimation increased [Unknown]
  - Fatigue [Unknown]
  - Insomnia [Unknown]
  - Disturbance in attention [Unknown]
  - Anxiety [Unknown]
  - Drug dose omission [Unknown]
